FAERS Safety Report 9681272 (Version 1)
Quarter: 2020Q3

REPORT INFORMATION
  Report Type: Report from Study
  Country: US (occurrence: US)
  Receive Date: 20131111
  Receipt Date: 20131111
  Transmission Date: 20201104
  Serious: Yes (Life-Threatening, Hospitalization)
  Sender: FDA-Public Use
  Company Number: PHHY2013US124463

PATIENT
  Age: 43 Year
  Sex: Male
  Weight: 103.4 kg

DRUGS (18)
  1. 5?FLUOROURACIL [Suspect]
     Active Substance: FLUOROURACIL
     Indication: GASTROOESOPHAGEAL CANCER
     Dosage: 896 MG, QW2
     Route: 040
     Dates: start: 20121128
  2. 5?FLUOROURACIL [Suspect]
     Active Substance: FLUOROURACIL
     Dosage: 5376 MG, QW2
     Route: 042
     Dates: start: 20130123
  3. DEXAMETHASONE. [Concomitant]
     Active Substance: DEXAMETHASONE
     Indication: NAUSEA
     Dosage: 4 MG, QD AS REQUIRED
     Route: 048
     Dates: start: 20121119
  4. OXALIPLATIN. [Suspect]
     Active Substance: OXALIPLATIN
     Dosage: 190.4 MG, QW2
     Route: 042
     Dates: start: 20130123
  5. PALONOSETRON HYDROCHLORIDE. [Concomitant]
     Active Substance: PALONOSETRON HYDROCHLORIDE
     Dosage: 0.25 MG, UNK
     Route: 042
  6. FOSAPREPITANT MEGLUMINE [Concomitant]
     Active Substance: FOSAPREPITANT
     Dosage: 150 MG, UNK
     Route: 042
  7. 5?FLUOROURACIL [Suspect]
     Active Substance: FLUOROURACIL
     Dosage: 896 MG, QW2
     Route: 040
     Dates: start: 20130123
  8. FOLINIC ACID [Suspect]
     Active Substance: LEUCOVORIN
     Indication: GASTROOESOPHAGEAL CANCER
     Dosage: 896 MG, QW2
     Route: 042
     Dates: start: 20121128
  9. ONARTUZUMAB. [Suspect]
     Active Substance: ONARTUZUMAB
     Dosage: 990 MG, QW2
     Route: 042
     Dates: start: 20130123
  10. FOLINIC ACID [Suspect]
     Active Substance: LEUCOVORIN
     Dosage: 896 MG, QW2
     Route: 042
     Dates: start: 20130123
  11. ONDANSETRON [Concomitant]
     Active Substance: ONDANSETRON
     Indication: NAUSEA
     Dosage: 8 MG, QD AS REQUIRED
     Route: 048
  12. PANTOPRAZOLE SODIUM. [Concomitant]
     Active Substance: PANTOPRAZOLE SODIUM
     Indication: OESOPHAGEAL DISORDER
     Route: 048
     Dates: start: 20121113
  13. ASPIRIN. [Concomitant]
     Active Substance: ASPIRIN
  14. OXALIPLATIN. [Suspect]
     Active Substance: OXALIPLATIN
     Indication: GASTROOESOPHAGEAL CANCER
     Dosage: 190.4 MG, QW2
     Route: 042
     Dates: start: 20121128
  15. DEXAMETHASONE SODIUM PHOSPHATE. [Concomitant]
     Active Substance: DEXAMETHASONE SODIUM PHOSPHATE
     Dosage: 10 MG, UNK
     Route: 042
     Dates: start: 20121128
  16. 5?FLUOROURACIL [Suspect]
     Active Substance: FLUOROURACIL
     Dosage: 5376 MG, QW2
     Route: 042
  17. ONARTUZUMAB. [Suspect]
     Active Substance: ONARTUZUMAB
     Indication: GASTROOESOPHAGEAL CANCER
     Route: 042
     Dates: start: 20121128
  18. METOCLOPRAMIDE HYDROCHLORIDE. [Concomitant]
     Active Substance: METOCLOPRAMIDE HYDROCHLORIDE
     Indication: NAUSEA
     Dosage: 10 MG, QD AS REQUIRED
     Dates: start: 20121119

REACTIONS (6)
  - Sneezing [Not Recovered/Not Resolved]
  - Dyspnoea [Not Recovered/Not Resolved]
  - Pulmonary embolism [Not Recovered/Not Resolved]
  - Pain [Not Recovered/Not Resolved]
  - Chest discomfort [Not Recovered/Not Resolved]
  - Cough [Not Recovered/Not Resolved]

NARRATIVE: CASE EVENT DATE: 20130121
